FAERS Safety Report 6655146-4 (Version None)
Quarter: 2010Q1

REPORT INFORMATION
  Report Type: 
  Country: None (occurrence: None)
  Receive Date: 20100329
  Receipt Date: 20100316
  Transmission Date: 20100710
  Serious: Yes (Hospitalization)
  Sender: FDA-Public Use
  Company Number: US-BAYER-200918402NA

PATIENT
  Age: 66 Year
  Sex: Male

DRUGS (22)
  1. CAMPATH [Suspect]
     Indication: CHRONIC LYMPHOCYTIC LEUKAEMIA RECURRENT
     Dosage: AS USED: 30 MG
     Route: 058
     Dates: start: 20090202
  2. CAMPATH [Suspect]
     Dosage: AS USED: 45 MG
     Route: 058
  3. CAMPATH [Suspect]
     Dosage: AS USED: 90 MG
     Route: 058
     Dates: end: 20090323
  4. RITUXIMAB [Suspect]
     Indication: CHRONIC LYMPHOCYTIC LEUKAEMIA RECURRENT
     Dosage: AS USED: 375 MG/M2
     Route: 042
     Dates: start: 20090202
  5. FLOMAX [Concomitant]
  6. AVODART [Concomitant]
  7. MULTI-VITAMIN [Concomitant]
  8. LEVAQUIN [Concomitant]
  9. MEPRON [Concomitant]
  10. VALCYTE [Concomitant]
  11. METFORMIN [Concomitant]
  12. TYLENOL-500 [Concomitant]
  13. BENADRYL [Concomitant]
  14. FLONASE [Concomitant]
  15. AFRIN [Concomitant]
  16. MUCINEX [Concomitant]
  17. ATOVAQUONE [Concomitant]
  18. CIPROFLOXACIN [Concomitant]
  19. ACYCLOVIR [Concomitant]
  20. MIRALAX [Concomitant]
  21. LACTULOSE [Concomitant]
  22. RED BLOOD CELLS [Concomitant]
     Dates: start: 20090401

REACTIONS (2)
  - CONSTIPATION [None]
  - FEBRILE NEUTROPENIA [None]
